FAERS Safety Report 6820773-8 (Version None)
Quarter: 2010Q3

REPORT INFORMATION
  Report Type: 
  Country: None (occurrence: None)
  Receive Date: 20100707
  Receipt Date: 20060206
  Transmission Date: 20110219
  Serious: No
  Sender: FDA-Public Use
  Company Number: US-PFIZER INC-2007058407

PATIENT
  Sex: Male

DRUGS (1)
  1. ZOLOFT [Suspect]
     Dates: start: 20060101, end: 20060201

REACTIONS (2)
  - COUGH [None]
  - DRY MOUTH [None]
